FAERS Safety Report 5658795-5 (Version None)
Quarter: 2008Q1

REPORT INFORMATION
  Report Type: 
  Country: None (occurrence: None)
  Receive Date: 20080310
  Receipt Date: 20070530
  Transmission Date: 20080703
  Serious: Yes (Other)
  Sender: FDA-Public Use
  Company Number: US-BAYER-200711138BCC

PATIENT
  Age: 55 Year
  Sex: Male
  Weight: 86 kg

DRUGS (2)
  1. ALEVE [Suspect]
     Indication: MYALGIA
     Route: 048
     Dates: start: 20070401
  2. VASOTEC [Concomitant]

REACTIONS (2)
  - HAEMATOCHEZIA [None]
  - RASH [None]
